FAERS Safety Report 5929750-2 (Version None)
Quarter: 2008Q4

REPORT INFORMATION
  Report Type: 
  Country: None (occurrence: None)
  Receive Date: 20081024
  Receipt Date: 20081022
  Transmission Date: 20090506
  Serious: Yes (Death)
  Sender: FDA-Public Use
  Company Number: AR-BRISTOL-MYERS SQUIBB COMPANY-14361422

PATIENT

DRUGS (12)
  1. ORENCIA [Suspect]
     Indication: RHEUMATOID ARTHRITIS
     Dosage: RECEIVED TOTAL OF 192 INF THERAPY DATES: 17MAY07,12JUN07+17JUL07 TIME 2MONTHS
     Route: 042
     Dates: start: 20070517
  2. CORTICOSTEROID [Suspect]
     Indication: RHEUMATOID ARTHRITIS
  3. LEFLUNOMIDE [Suspect]
     Indication: RHEUMATOID ARTHRITIS
  4. PREDNISONE TAB [Concomitant]
  5. METHOTREXATE [Concomitant]
  6. CARVEDILOL [Concomitant]
  7. LIPITOR [Concomitant]
  8. CLOPIDOGREL BISULFATE [Concomitant]
  9. VITAMIN B1 TAB [Concomitant]
  10. VITAMIN B6 [Concomitant]
  11. VITAMIN B-12 [Concomitant]
  12. PROCETOKEN [Concomitant]

REACTIONS (1)
  - ARRHYTHMIA [None]
